FAERS Safety Report 4355385-1 (Version None)
Quarter: 2004Q2

REPORT INFORMATION
  Report Type: 
  Country: None (occurrence: None)
  Receive Date: 20040505
  Receipt Date: 20040414
  Transmission Date: 20050107
  Serious: Yes (Hospitalization)
  Sender: FDA-Public Use
  Company Number: 2004211095IE

PATIENT
  Sex: Female

DRUGS (7)
  1. XANAX [Suspect]
     Indication: AGITATION
     Dosage: 0.125 MG, BID
     Dates: start: 20030801
  2. ARICEPT [Suspect]
     Indication: DEMENTIA ALZHEIMER'S TYPE
     Dosage: 10 MG, HS
     Dates: start: 20030701
  3. FERROUS SULFATE TAB [Concomitant]
  4. OMEPRAZOLE [Concomitant]
  5. ROFECOXIB [Concomitant]
  6. TRAMADOL HCL [Concomitant]
  7. PHENYTOIN [Concomitant]

REACTIONS (2)
  - DISINHIBITION [None]
  - PSYCHOMOTOR HYPERACTIVITY [None]
